FAERS Safety Report 4380487-3 (Version None)
Quarter: 2004Q2

REPORT INFORMATION
  Report Type: 
  Country: None (occurrence: None)
  Receive Date: 20040618
  Receipt Date: 20040608
  Transmission Date: 20050107
  Serious: Yes (Hospitalization)
  Sender: FDA-Public Use
  Company Number: TR-JNJFOC-20040602393

PATIENT
  Sex: Male
  Weight: 62 kg

DRUGS (5)
  1. REMICADE [Suspect]
     Route: 042
  2. REMICADE [Suspect]
     Indication: RHEUMATOID ARTHRITIS
     Route: 042
  3. METHOTREXATE [Concomitant]
     Indication: RHEUMATOID ARTHRITIS
     Route: 049
     Dates: start: 20000101
  4. QUENCYL [Concomitant]
     Route: 049
  5. PREDNISOLONE [Concomitant]
     Route: 049

REACTIONS (7)
  - C-REACTIVE PROTEIN INCREASED [None]
  - LYMPHOCYTE PERCENTAGE DECREASED [None]
  - MONOCYTE PERCENTAGE INCREASED [None]
  - PLEURISY [None]
  - PYREXIA [None]
  - TUBERCULOUS PLEURISY [None]
  - WEIGHT DECREASED [None]
